FAERS Safety Report 5398994-3 (Version None)
Quarter: 2007Q3

REPORT INFORMATION
  Report Type: 
  Country: None (occurrence: None)
  Receive Date: 20070727
  Receipt Date: 20070724
  Transmission Date: 20080115
  Serious: Yes (Hospitalization)
  Sender: FDA-Public Use
  Company Number: US-BRISTOL-MYERS SQUIBB COMPANY-13855390

PATIENT
  Age: 69 Year
  Sex: Female
  Weight: 54 kg

DRUGS (4)
  1. CETUXIMAB [Suspect]
     Indication: COLON CANCER STAGE III
     Dosage: CYC1:400MG/M2 IV OVER 2HR DAY1;250MG/M2 IV OVER 1 HR DAY8. CYC2-12:250MG/M2 IV OVER 1HR DAY 1 + 8.
     Route: 042
     Dates: start: 20061113, end: 20070213
  2. OXALIPLATIN [Suspect]
     Indication: COLON CANCER STAGE III
     Dosage: CYC 1-12: 85MG/M2 IV OVER 120 MIN DAY 1.
     Route: 042
     Dates: start: 20061113, end: 20070206
  3. LEUCOVORIN CALCIUM [Suspect]
     Indication: COLON CANCER STAGE III
     Dosage: CYC 1 + 2: 400MG/M2 IV OVER 120 MIN DAY 1.
     Route: 042
     Dates: start: 20061113, end: 20070206
  4. FLUOROURACIL [Suspect]
     Indication: COLON CANCER STAGE III
     Dosage: CYC1-12:400MG/M2 IV PUSH ON DAY 1 FOLLOWED BY 2400 MG/M2 CIV OVER 46-48 HRS.
     Route: 042
     Dates: start: 20061113, end: 20070206

REACTIONS (1)
  - CHOLECYSTITIS [None]
